FAERS Safety Report 4420330-7 (Version None)
Quarter: 2004Q2

REPORT INFORMATION
  Report Type: 
  Country: None (occurrence: None)
  Receive Date: 20040622
  Receipt Date: 20030623
  Transmission Date: 20050107
  Serious: Yes (Other)
  Sender: FDA-Public Use
  Company Number: US-JNJFOC-20030604021

PATIENT
  Age: 88 Year
  Sex: Female

DRUGS (27)
  1. HALDOL [Suspect]
     Indication: DRUG USE FOR UNKNOWN INDICATION
     Dosage: 5 MG, 1 IN 4 HOUR
  2. HALDOL [Suspect]
     Indication: DRUG USE FOR UNKNOWN INDICATION
     Dosage: 3 MG, 1 IN 1 DAY
  3. LEXAPRO [Suspect]
     Indication: DEPRESSION
     Dosage: 10 MG, 1 IN 1 DAY
     Dates: start: 20030603, end: 20030606
  4. ATIVAN [Concomitant]
  5. RISPERDAL [Concomitant]
  6. VASOTEC [Concomitant]
  7. LOPRESSOR [Concomitant]
  8. NITRO PATCH (GLYCERYL TRINITRATE) [Concomitant]
  9. HYDRODIURIL [Concomitant]
  10. POTASSIUM (POTASSIUM) [Concomitant]
  11. SLOW-MAG (MAGNESIUKM CHLORIDE ANHYDROUS) [Concomitant]
  12. PREMARIN [Concomitant]
  13. SYNTHROID [Concomitant]
  14. ALPHAGAN [Concomitant]
  15. LEVAQUIN [Concomitant]
  16. LIDEX [Concomitant]
  17. ASPIRIN [Concomitant]
  18. TYLENOL [Concomitant]
  19. VICODIN [Concomitant]
  20. PROTONIX [Concomitant]
  21. PRILOSEC [Concomitant]
  22. GAVISCON [Concomitant]
  23. MAALOX (MAALOX) [Concomitant]
  24. MILK OF MAGNESIA (MAGNESIUM HYDROXIDE) [Concomitant]
  25. THERAGRAM (THERAGRAN) [Concomitant]
  26. VITAMIN E [Concomitant]
  27. ENSURE (ENSURE) [Concomitant]

REACTIONS (1)
  - CONVULSION [None]
